FAERS Safety Report 5250480-7 (Version None)
Quarter: 2007Q1

REPORT INFORMATION
  Report Type: 
  Country: None (occurrence: None)
  Receive Date: 20070228
  Receipt Date: 20060508
  Transmission Date: 20070707
  Serious: No
  Sender: FDA-Public Use
  Company Number: US-GLAXOSMITHKLINE-A0602832A

PATIENT
  Age: 65 Year
  Sex: Female

DRUGS (12)
  1. LAMICTAL [Suspect]
     Indication: DRUG USE FOR UNKNOWN INDICATION
     Dosage: 25MG PER DAY
     Route: 048
     Dates: start: 20060313
  2. ALLEGRA [Concomitant]
  3. ADDERALL 10 [Concomitant]
  4. LEXAPRO [Concomitant]
  5. ESTRATEST [Concomitant]
  6. SYNTHROID [Concomitant]
  7. DESIPRAMINE HCL [Concomitant]
  8. CALCIUM [Concomitant]
  9. OMEGA 3 [Concomitant]
  10. FOLTX [Concomitant]
  11. MULTI-VITAMIN [Concomitant]
  12. DURAGESIC-100 [Concomitant]

REACTIONS (1)
  - PAIN IN JAW [None]
